FAERS Safety Report 18809618 (Version 1)
Quarter: 2021Q1

REPORT INFORMATION
  Report Type: Spontaneous
  Country: US (occurrence: US)
  Receive Date: 20210129
  Receipt Date: 20210129
  Transmission Date: 20210419
  Serious: Yes (Death)
  Sender: FDA-Public Use
  Company Number: US-ROCHE-2750776

PATIENT
  Age: 61 Year
  Sex: Male
  Weight: 113.5 kg

DRUGS (14)
  1. GAZYVA [Suspect]
     Active Substance: OBINUTUZUMAB
     Indication: CHRONIC LYMPHOCYTIC LEUKAEMIA
     Dosage: ONGOING? NO
     Route: 042
     Dates: start: 201912, end: 202005
  2. FLOMAX [Concomitant]
     Active Substance: TAMSULOSIN HYDROCHLORIDE
     Indication: URINARY RETENTION
     Route: 048
     Dates: start: 2018
  3. MAGNESIUM OXIDE. [Concomitant]
     Active Substance: MAGNESIUM OXIDE
     Route: 048
     Dates: start: 2020
  4. ALLEGRA [Concomitant]
     Active Substance: FEXOFENADINE HYDROCHLORIDE
     Indication: HYPERSENSITIVITY
     Dates: start: 2006, end: 2020
  5. FISH OIL [Concomitant]
     Active Substance: FISH OIL
     Route: 048
     Dates: start: 201911
  6. VENCLEXTA [Suspect]
     Active Substance: VENETOCLAX
     Indication: CHRONIC LYMPHOCYTIC LEUKAEMIA
     Dosage: 4 TABS DAILY THINKS IT^S 200 MG ;ONGOING: NO
     Route: 048
     Dates: start: 201911, end: 202011
  7. PROTONIX [Concomitant]
     Active Substance: PANTOPRAZOLE SODIUM
     Route: 048
     Dates: start: 20190930
  8. VITAMIN D3 [Concomitant]
     Active Substance: CHOLECALCIFEROL
     Route: 048
     Dates: start: 2012
  9. COENZYME Q10 [Concomitant]
     Active Substance: DIETARY SUPPLEMENT\UBIDECARENONE
     Route: 048
     Dates: start: 2012
  10. PROTONIX [Concomitant]
     Active Substance: PANTOPRAZOLE SODIUM
     Indication: GASTRIC ULCER
     Route: 048
     Dates: start: 2012
  11. ZOCOR [Concomitant]
     Active Substance: SIMVASTATIN
     Indication: BLOOD CHOLESTEROL INCREASED
     Dosage: 1 TABLET EVERY OTHER DAY ;ONGOING: YES
     Route: 048
     Dates: start: 2007
  12. LUTEIN [Concomitant]
     Active Substance: LUTEIN
  13. VITAMIN B12 [Concomitant]
     Active Substance: CYANOCOBALAMIN
     Route: 048
     Dates: start: 2012
  14. ZYRTEC (UNITED STATES) [Concomitant]
     Indication: HYPERSENSITIVITY
     Route: 048
     Dates: start: 202006

REACTIONS (12)
  - Blood magnesium decreased [Not Recovered/Not Resolved]
  - Red blood cell count decreased [Not Recovered/Not Resolved]
  - Dizziness [Unknown]
  - Pollakiuria [Not Recovered/Not Resolved]
  - Constipation [Not Recovered/Not Resolved]
  - Loss of consciousness [Fatal]
  - Sinus bradycardia [Not Recovered/Not Resolved]
  - Nausea [Recovered/Resolved]
  - Fluid retention [Not Recovered/Not Resolved]
  - Hypotension [Not Recovered/Not Resolved]
  - Rash [Recovered/Resolved]
  - Abdominal tenderness [Unknown]

NARRATIVE: CASE EVENT DATE: 201912
